FAERS Safety Report 20683017 (Version 1)
Quarter: 2022Q2

REPORT INFORMATION
  Report Type: Spontaneous
  Country: US (occurrence: US)
  Receive Date: 20220407
  Receipt Date: 20220407
  Transmission Date: 20220720
  Serious: Yes (Hospitalization)
  Sender: FDA-Public Use
  Company Number: US-JNJFOC-20220405899

PATIENT
  Age: 88 Year
  Sex: Male
  Weight: 43.130 kg

DRUGS (1)
  1. ERLEADA [Suspect]
     Active Substance: APALUTAMIDE
     Indication: Prostate cancer
     Route: 048
     Dates: start: 202202

REACTIONS (4)
  - Anaemia [Recovering/Resolving]
  - Dysphagia [Unknown]
  - Wrong technique in product usage process [Unknown]
  - Off label use [Unknown]
